FAERS Safety Report 9702824 (Version 1)
Quarter: 2013Q4

REPORT INFORMATION
  Report Type: Report from Study
  Country: AU (occurrence: AU)
  Receive Date: 20131121
  Receipt Date: 20131121
  Transmission Date: 20140711
  Serious: Yes (Hospitalization)
  Sender: FDA-Public Use
  Company Number: AU-GLAXOSMITHKLINE-B0945974A

PATIENT
  Sex: Male

DRUGS (5)
  1. DABRAFENIB [Suspect]
     Indication: METASTATIC MALIGNANT MELANOMA
     Dosage: 150MG TWICE PER DAY
     Route: 048
  2. TRAMETINIB [Suspect]
     Indication: METASTATIC MALIGNANT MELANOMA
     Dosage: 2MG PER DAY
     Route: 048
  3. DEXAMETHASONE [Concomitant]
     Indication: PYREXIA
     Dosage: 2MG PER DAY
     Route: 048
     Dates: start: 201307
  4. PANTOPRAZOLE [Concomitant]
     Indication: GASTRITIS PROPHYLAXIS
     Dosage: 20MG PER DAY
     Route: 048
     Dates: start: 201307
  5. FUNGILIN LOZENGES [Concomitant]
     Indication: ORAL CANDIDIASIS
     Dosage: 10MG PER DAY
     Route: 048
     Dates: start: 201311

REACTIONS (1)
  - Pyrexia [Recovered/Resolved]
